FAERS Safety Report 10934622 (Version 2)
Quarter: 2015Q1

REPORT INFORMATION
  Report Type: Spontaneous
  Country: DE (occurrence: DE)
  Receive Date: 20150320
  Receipt Date: 20150324
  Transmission Date: 20150721
  Serious: Yes (Hospitalization, Other)
  Sender: FDA-Public Use
  Company Number: DE-PFIZER INC-2015097680

PATIENT
  Age: 50 Year
  Sex: Male

DRUGS (4)
  1. PANTOZOL [Suspect]
     Active Substance: PANTOPRAZOLE SODIUM
     Dosage: UNK, AS NEEDED
     Route: 065
  2. IBUPROFEN. [Suspect]
     Active Substance: IBUPROFEN
     Dosage: UNK, AS NEEDED
     Route: 065
  3. TRAMADOL [Suspect]
     Active Substance: TRAMADOL
     Dosage: 1 G, AS NEEDED
     Route: 065
  4. ALCOHOL. [Suspect]
     Active Substance: ALCOHOL
     Dosage: UNK
     Route: 065

REACTIONS (3)
  - Suicide attempt [Unknown]
  - Aggression [Unknown]
  - Blood alcohol increased [Unknown]

NARRATIVE: CASE EVENT DATE: 201503
